FAERS Safety Report 23885729 (Version 8)
Quarter: 2024Q3

REPORT INFORMATION
  Report Type: Spontaneous
  Country: US (occurrence: US)
  Receive Date: 20240522
  Receipt Date: 20240830
  Transmission Date: 20241016
  Serious: No
  Sender: NOVARTIS
  Company Number: US-002147023-NVSC2024US108129

PATIENT

DRUGS (1)
  1. KESIMPTA [Suspect]
     Active Substance: OFATUMUMAB
     Indication: Product used for unknown indication
     Dosage: UNK
     Route: 065

REACTIONS (8)
  - Headache [Unknown]
  - Pain [Unknown]
  - Nasopharyngitis [Recovered/Resolved]
  - Blood iron decreased [Unknown]
  - Illness [Unknown]
  - Oropharyngeal pain [Unknown]
  - Lymphadenopathy [Unknown]
  - Drug ineffective [Unknown]
